FAERS Safety Report 6062926-5 (Version None)
Quarter: 2009Q1

REPORT INFORMATION
  Report Type: 
  Country: None (occurrence: None)
  Receive Date: 20090203
  Receipt Date: 20090129
  Transmission Date: 20090719
  Serious: Yes (Hospitalization, Congenital Anomaly)
  Sender: FDA-Public Use
  Company Number: A0678480A

PATIENT
  Sex: Female
  Weight: 2.7 kg

DRUGS (2)
  1. PAXIL [Suspect]
     Indication: DRUG USE FOR UNKNOWN INDICATION
  2. VITAMIN TAB [Concomitant]

REACTIONS (14)
  - CARDIAC FAILURE CONGESTIVE [None]
  - CARDIAC MURMUR [None]
  - COARCTATION OF THE AORTA [None]
  - CONGENITAL AORTIC STENOSIS [None]
  - CONGENITAL AORTIC VALVE INCOMPETENCE [None]
  - DRUG EXPOSURE DURING PREGNANCY [None]
  - HEART DISEASE CONGENITAL [None]
  - LEFT VENTRICULAR HYPERTROPHY [None]
  - PATENT DUCTUS ARTERIOSUS [None]
  - PERSISTENT FOETAL CIRCULATION [None]
  - RIGHT ATRIAL DILATATION [None]
  - RIGHT VENTRICULAR HYPERTROPHY [None]
  - TURNER'S SYNDROME [None]
  - VENTRICULAR SEPTAL DEFECT [None]
